FAERS Safety Report 23172076 (Version 2)
Quarter: 2023Q4

REPORT INFORMATION
  Report Type: Spontaneous
  Country: IT (occurrence: IT)
  Receive Date: 20231110
  Receipt Date: 20231122
  Transmission Date: 20240110
  Serious: Yes (Other)
  Sender: FDA-Public Use
  Company Number: IT-SANDOZ-SDZ2023IT046906

PATIENT
  Age: 55 Year
  Sex: Male

DRUGS (5)
  1. BORTEZOMIB [Suspect]
     Active Substance: BORTEZOMIB
     Indication: Haematological malignancy
     Dosage: 1.3 MILLIGRAM/SQ. METER, Q2W, (FOR TWO WEEKS OVER A 35-DAYS TREATMENT COURSE)
     Route: 065
  2. DEXAMETHASONE [Suspect]
     Active Substance: DEXAMETHASONE
     Indication: Uraemic pruritus
     Dosage: 40 MILLIGRAM, QW
     Route: 065
  3. DEXAMETHASONE [Suspect]
     Active Substance: DEXAMETHASONE
     Indication: Lichenoid keratosis
  4. DUPILUMAB [Suspect]
     Active Substance: DUPILUMAB
     Indication: Lichenoid keratosis
     Dosage: 600 MILLIGRAM, Q2W
     Route: 065
  5. DUPILUMAB [Suspect]
     Active Substance: DUPILUMAB
     Dosage: 300 MILLIGRAM, Q2W
     Route: 065

REACTIONS (2)
  - Bladder sphincter atony [Unknown]
  - Paraesthesia [Unknown]
